FAERS Safety Report 5295507-1 (Version None)
Quarter: 2007Q2

REPORT INFORMATION
  Report Type: 
  Country: None (occurrence: None)
  Receive Date: 20070405
  Receipt Date: 20070320
  Transmission Date: 20071010
  Serious: Yes (Other)
  Sender: FDA-Public Use
  Company Number: 234464

PATIENT
  Age: 60 Year
  Sex: Male
  Weight: 89.4 kg

DRUGS (7)
  1. AVASTIN [Suspect]
     Indication: COLON CANCER
     Dosage: 650 MG, Q2W, INTRAVENOUS
     Route: 042
     Dates: start: 20051206
  2. OXALIPLATIN [Suspect]
     Indication: COLON CANCER
     Dosage: 85 MG, Q2W, INTRAVENOUS
     Route: 042
     Dates: start: 20051206, end: 20060605
  3. FLUOROURACIL [Suspect]
     Indication: COLON CANCER
     Dosage: 800 MG, Q2W, INTRAVENOUS
     Route: 042
     Dates: start: 20051206, end: 20060605
  4. LEUCOVORIN CALCIUM [Suspect]
     Indication: COLON CANCER
     Dosage: 400 MG, Q2QW, INTRAVENOUS
     Route: 042
     Dates: start: 20051206, end: 20060605
  5. MULTIVITAMIN (MULTIVITAMINS NOS) [Concomitant]
  6. ASCORBIC ACID [Concomitant]
  7. CRESTOR [Concomitant]

REACTIONS (3)
  - CORONARY ARTERY DISEASE [None]
  - DEPRESSION [None]
  - SMALL INTESTINAL OBSTRUCTION [None]
